FAERS Safety Report 10221393 (Version 1)
Quarter: 2014Q2

REPORT INFORMATION
  Report Type: Spontaneous
  Country: US (occurrence: US)
  Receive Date: 20140606
  Receipt Date: 20140606
  Transmission Date: 20141212
  Serious: Yes (Hospitalization)
  Sender: FDA-Public Use
  Company Number: US-ASTRAZENECA-2014SE38693

PATIENT
  Age: 57 Year
  Sex: Female
  Weight: 86.2 kg

DRUGS (6)
  1. METOPROLOL SUCCINATE [Suspect]
     Indication: BLOOD PRESSURE
     Route: 048
  2. METOPROLOL SUCCINATE [Suspect]
     Indication: BLOOD PRESSURE
     Route: 048
     Dates: start: 20140426, end: 20140507
  3. METOPROLOL SUCCINATE [Suspect]
     Indication: BLOOD PRESSURE
     Route: 048
     Dates: start: 201405
  4. CALCIUM [Concomitant]
     Indication: VASCULAR GRAFT
     Route: 048
     Dates: start: 2004
  5. SYNTHROID [Concomitant]
     Indication: THYROID HORMONE REPLACEMENT THERAPY
     Route: 048
     Dates: start: 200808
  6. WOMENS ULTRA MEGA ENERGY MULTIVITAMIN [Concomitant]
     Indication: DECREASED APPETITE
     Route: 048
     Dates: start: 2004

REACTIONS (14)
  - Angioedema [Recovered/Resolved]
  - Lung disorder [Recovered/Resolved]
  - Bronchospasm [Recovered/Resolved]
  - Chest pain [Recovered/Resolved]
  - Dyspnoea [Recovered/Resolved]
  - Cough [Not Recovered/Not Resolved]
  - Malaise [Not Recovered/Not Resolved]
  - Frustration [Not Recovered/Not Resolved]
  - Paranoia [Not Recovered/Not Resolved]
  - Dyspnoea [Not Recovered/Not Resolved]
  - Syncope [Recovered/Resolved]
  - Asthenia [Not Recovered/Not Resolved]
  - Irritability [Not Recovered/Not Resolved]
  - Fear [Not Recovered/Not Resolved]
